FAERS Safety Report 5649454-3 (Version None)
Quarter: 2008Q1

REPORT INFORMATION
  Report Type: 
  Country: None (occurrence: None)
  Receive Date: 20080304
  Receipt Date: 20080225
  Transmission Date: 20080703
  Serious: Yes (Other)
  Sender: FDA-Public Use
  Company Number: CA-ASTRAZENECA-2008UW04242

PATIENT

DRUGS (1)
  1. NOLVADEX [Suspect]
     Route: 048

REACTIONS (2)
  - DRY EYE [None]
  - RETINAL HAEMORRHAGE [None]
